FAERS Safety Report 5852035-X (Version None)
Quarter: 2008Q3

REPORT INFORMATION
  Report Type: 
  Country: None (occurrence: None)
  Receive Date: 20080820
  Receipt Date: 20080808
  Transmission Date: 20090109
  Serious: Yes (Other)
  Sender: FDA-Public Use
  Company Number: FR-PFIZER INC-2008068101

PATIENT
  Sex: Male

DRUGS (2)
  1. VFEND [Suspect]
     Indication: CEREBRAL ASPERGILLOSIS
  2. VFEND [Suspect]
     Indication: ASPERGILLOSIS ORAL

REACTIONS (2)
  - PHOTOSENSITIVITY REACTION [None]
  - SKIN CANCER [None]
